FAERS Safety Report 11560329 (Version 1)
Quarter: 2015Q3

REPORT INFORMATION
  Report Type: Spontaneous
  Country: CO (occurrence: CO)
  Receive Date: 20150928
  Receipt Date: 20150928
  Transmission Date: 20151125
  Serious: Yes (Other)
  Sender: FDA-Public Use
  Company Number: CO-BAYER-2015-425848

PATIENT
  Age: 30 Year
  Sex: Female

DRUGS (2)
  1. FENAZOPIRIDINA [Concomitant]
  2. YASMINIQ [Suspect]
     Active Substance: DROSPIRENONE\ETHINYL ESTRADIOL
     Indication: CONTRACEPTION
     Dosage: 1 DF, QD
     Route: 048
     Dates: start: 2013

REACTIONS (2)
  - Product use issue [None]
  - Urinary tract infection [None]

NARRATIVE: CASE EVENT DATE: 20150915
